FAERS Safety Report 8383552-9 (Version None)
Quarter: 2012Q1

REPORT INFORMATION
  Report Type: 
  Country: None (occurrence: None)
  Receive Date: 20120323
  Receipt Date: 20110505
  Transmission Date: 20120608
  Serious: Yes (Hospitalization, Other)
  Sender: FDA-Public Use
  Company Number: 163-21880-11032453

PATIENT
  Age: 82 Year
  Sex: Female

DRUGS (4)
  1. ATIVAN [Concomitant]
  2. DEXAMEHASONE (DEXAMETHASONE) [Concomitant]
  3. METOPROLOL TARTRATE [Concomitant]
  4. REVLIMID [Suspect]
     Indication: MULTIPLE MYELOMA
     Dosage: 10 MG, DAILY X 21 DAYS, PO
     Route: 048
     Dates: start: 20101001, end: 20110101

REACTIONS (1)
  - APPENDICITIS [None]
